FAERS Safety Report 24223429 (Version 1)
Quarter: 2024Q3

REPORT INFORMATION
  Report Type: Spontaneous
  Country: US (occurrence: None)
  Receive Date: 20240816
  Receipt Date: 20240816
  Transmission Date: 20241017
  Serious: Yes (Hospitalization, Disabling, Other)
  Sender: Public
  Company Number: None

PATIENT
  Age: 83 Year
  Sex: Female
  Weight: 54.43 kg

DRUGS (9)
  1. PREDNISONE [Suspect]
     Active Substance: PREDNISONE
     Indication: Migraine
     Dosage: FREQUENCY : EVERY OTHER WEEK;?
     Route: 048
     Dates: start: 20231222, end: 20240105
  2. TYLENOL [Suspect]
     Active Substance: ACETAMINOPHEN
  3. LEVOTHYROXINE [Concomitant]
  4. ATORVASTATINE [Concomitant]
  5. BABY ASPIRIN [Concomitant]
  6. CALCIUM + VIT D3 [Concomitant]
  7. MULTVITAMIN/WOMEN [Concomitant]
  8. VISION FORMULA WITH LUTEIN [Concomitant]
  9. VIT. B COMPLEX [Concomitant]

REACTIONS (10)
  - Drug ineffective [None]
  - Pyrexia [None]
  - Headache [None]
  - Cerebral haemorrhage [None]
  - Hypoaesthesia [None]
  - Myalgia [None]
  - Bone pain [None]
  - Dysstasia [None]
  - Atrial fibrillation [None]
  - Blood pressure decreased [None]

NARRATIVE: CASE EVENT DATE: 20240112
